FAERS Safety Report 7006781-5 (Version None)
Quarter: 2010Q3

REPORT INFORMATION
  Report Type: 
  Country: None (occurrence: None)
  Receive Date: 20100922
  Receipt Date: 20100914
  Transmission Date: 20110219
  Serious: No
  Sender: FDA-Public Use
  Company Number: US-BIOGENIDEC-2010BI032134

PATIENT
  Age: 44 Year
  Sex: Male

DRUGS (2)
  1. TYSABRI [Suspect]
     Indication: MULTIPLE SCLEROSIS
     Route: 042
     Dates: start: 20100125
  2. AMPYRA [Concomitant]
     Indication: MOBILITY DECREASED
     Dates: start: 20100401

REACTIONS (3)
  - MULTIPLE SCLEROSIS RELAPSE [None]
  - THINKING ABNORMAL [None]
  - TREMOR [None]
